FAERS Safety Report 4322492-9 (Version None)
Quarter: 2004Q1

REPORT INFORMATION
  Report Type: 
  Country: None (occurrence: None)
  Receive Date: 20040319
  Receipt Date: 20040308
  Transmission Date: 20041129
  Serious: No
  Sender: FDA-Public Use
  Company Number: 04P-167-0252984-00

PATIENT
  Age: 72 Year
  Sex: Male
  Weight: 151 kg

DRUGS (8)
  1. MERIDIA [Suspect]
     Indication: OBESITY
     Dosage: 10 MG, 1 IN 1 D, PER ORAL
     Route: 048
     Dates: start: 20000729, end: 20001217
  2. DILTIAZEM [Concomitant]
  3. ALLOPURINOL [Concomitant]
  4. RANITIDINE [Concomitant]
  5. CAPTOPRIL [Concomitant]
  6. CARDURA XL [Concomitant]
  7. ASPIRIN [Concomitant]
  8. BENDROFLUMETHIAZIDE [Concomitant]

REACTIONS (2)
  - DUODENAL ULCER [None]
  - MELAENA [None]
